FAERS Safety Report 14163869 (Version 3)
Quarter: 2018Q2

REPORT INFORMATION
  Report Type: Spontaneous
  Country: GB (occurrence: GB)
  Receive Date: 20171107
  Receipt Date: 20180615
  Transmission Date: 20180711
  Serious: Yes (Life-Threatening, Hospitalization, Disabling)
  Sender: FDA-Public Use
  Company Number: GB-KRKA, D.D., NOVO MESTO-2033380

PATIENT
  Age: 63 Year
  Sex: Male
  Weight: 80 kg

DRUGS (7)
  1. PANTOZOL [Suspect]
     Active Substance: PANTOPRAZOLE SODIUM
  2. OMEPRAZOLE WORLD [Suspect]
     Active Substance: OMEPRAZOLE
     Dates: start: 2002, end: 20050527
  3. PANTOPRAZOLE GENERIC [Suspect]
     Active Substance: PANTOPRAZOLE
     Dates: start: 20060725, end: 20060808
  4. RABEPRAZOLE GENERIC [Suspect]
     Active Substance: RABEPRAZOLE SODIUM
  5. LOSEC [Suspect]
     Active Substance: OMEPRAZOLE
  6. LANSOPRAZOLE GENERIC [Suspect]
     Active Substance: LANSOPRAZOLE
     Indication: PRODUCT USED FOR UNKNOWN INDICATION
     Dates: end: 20060808
  7. ACIPHEX [Suspect]
     Active Substance: RABEPRAZOLE SODIUM

REACTIONS (5)
  - Tetanus [Unknown]
  - Tetany [Unknown]
  - Hypoparathyroidism secondary [Unknown]
  - Hypomagnesaemia [Recovered/Resolved]
  - Hypocalcaemia [Recovered/Resolved]

NARRATIVE: CASE EVENT DATE: 2003
